FAERS Safety Report 7568935-9 (Version None)
Quarter: 2011Q2

REPORT INFORMATION
  Report Type: 
  Country: None (occurrence: None)
  Receive Date: 20110623
  Receipt Date: 20110617
  Transmission Date: 20111010
  Serious: Yes (Other)
  Sender: FDA-Public Use
  Company Number: US-PURDUE-USA-2011-0066530

PATIENT
  Age: 49 Year
  Sex: Female
  Weight: 56.689 kg

DRUGS (4)
  1. RITALIN [Concomitant]
     Indication: PRODUCT USED FOR UNKNOWN INDICATION
     Dosage: 20 MG, TID
  2. OXYCODONE HCL CR TABLETS (SIMILAR TO NDA 22-272) [Concomitant]
     Indication: PRODUCT USED FOR UNKNOWN INDICATION
     Dosage: 15 MG, UNK
  3. NEURONTIN [Concomitant]
     Indication: PRODUCT USED FOR UNKNOWN INDICATION
     Dosage: 300 MG, TID
  4. OXYCONTIN [Suspect]
     Indication: PRODUCT USED FOR UNKNOWN INDICATION
     Dosage: 80 MG, QID

REACTIONS (8)
  - CONSTIPATION [None]
  - ABDOMINAL DISTENSION [None]
  - ABDOMINAL PAIN UPPER [None]
  - PRODUCT QUALITY ISSUE [None]
  - ABDOMINAL DISCOMFORT [None]
  - FOREIGN BODY [None]
  - MYOCARDIAL INFARCTION [None]
  - GALLBLADDER PAIN [None]
